FAERS Safety Report 6170994-5 (Version None)
Quarter: 2009Q2

REPORT INFORMATION
  Report Type: 
  Country: None (occurrence: None)
  Receive Date: 20090428
  Receipt Date: 20090428
  Transmission Date: 20091009
  Serious: No
  Sender: FDA-Public Use
  Company Number: None

PATIENT
  Sex: Female
  Weight: 69.8539 kg

DRUGS (1)
  1. METOPROLOL TARTRATE [Suspect]
     Dosage: 50 BID PO
     Route: 048

REACTIONS (3)
  - DRUG EFFECT DECREASED [None]
  - MALAISE [None]
  - PRODUCT SUBSTITUTION ISSUE [None]
